FAERS Safety Report 5482341-2 (Version None)
Quarter: 2007Q4

REPORT INFORMATION
  Report Type: 
  Country: None (occurrence: None)
  Receive Date: 20071011
  Receipt Date: 20071009
  Transmission Date: 20080405
  Serious: Yes (Other)
  Sender: FDA-Public Use
  Company Number: AU-AVENTIS-200717568GDDC

PATIENT
  Age: 71 Year
  Sex: Male

DRUGS (2)
  1. LANTUS [Suspect]
     Indication: DIABETES MELLITUS
     Route: 058
     Dates: start: 20070629
  2. AUTOPEN INSULIN INJECTION PEN [Suspect]

REACTIONS (1)
  - PERIPHERAL VASCULAR DISORDER [None]
